FAERS Safety Report 23049570 (Version 1)
Quarter: 2023Q4

REPORT INFORMATION
  Report Type: Other
  Country: None (occurrence: US)
  Receive Date: 20231010
  Receipt Date: 20231010
  Transmission Date: 20240110
  Serious: Yes (Hospitalization)
  Sender: FDA-Public Use
  Company Number: US-OrBion Pharmaceuticals Private Limited-2146840

PATIENT
  Age: 32 Year
  Sex: Female

DRUGS (2)
  1. VENLAFAXINE HYDROCHLORIDE [Suspect]
     Active Substance: VENLAFAXINE HYDROCHLORIDE
     Route: 065
  2. GABAPENTIN [Concomitant]
     Active Substance: GABAPENTIN
     Route: 065

REACTIONS (9)
  - Cardiogenic shock [Recovered/Resolved]
  - Cardiac arrest [Recovered/Resolved]
  - Ejection fraction decreased [Recovered/Resolved]
  - Ventricular tachycardia [Recovered/Resolved]
  - Generalised tonic-clonic seizure [Recovered/Resolved]
  - Electrocardiogram QRS complex prolonged [Recovered/Resolved]
  - Hypotension [Recovered/Resolved]
  - Depressed level of consciousness [Recovered/Resolved]
  - Overdose [Recovered/Resolved]
